FAERS Safety Report 25392670 (Version 3)
Quarter: 2025Q4

REPORT INFORMATION
  Report Type: Report from Study
  Country: EU (occurrence: EU)
  Receive Date: 20250603
  Receipt Date: 20251102
  Transmission Date: 20260118
  Serious: Yes (Hospitalization)
  Sender: JOHNSON AND JOHNSON
  Company Number: EU-JNJFOC-20250521650

PATIENT
  Age: 49 Year
  Sex: Female
  Weight: 75 kg

DRUGS (2)
  1. SPRAVATO [Suspect]
     Active Substance: ESKETAMINE
     Indication: Depression
     Route: 045
     Dates: start: 20230530, end: 20230530
  2. SPRAVATO [Suspect]
     Active Substance: ESKETAMINE
     Dosage: 06-JUN-2023, 09-JUN-2023,13-JUN-2023, 16-JUN-2023,20-JUN-2023,23-JUN-2023,27-JUN-2023, 30-JUN-2023,
     Route: 045
     Dates: start: 20230602, end: 20250121

REACTIONS (1)
  - Bursitis [Recovered/Resolved]

NARRATIVE: CASE EVENT DATE: 20250128
